FAERS Safety Report 9256413 (Version 1)
Quarter: 2013Q2

REPORT INFORMATION
  Report Type: Report from Study
  Country: US (occurrence: US)
  Receive Date: 20130426
  Receipt Date: 20130426
  Transmission Date: 20140414
  Serious: Yes (Other)
  Sender: FDA-Public Use
  Company Number: US-ROCHE-1215227

PATIENT
  Age: 44 Year
  Sex: Male
  Weight: 133.4 kg

DRUGS (11)
  1. RITUXAN [Suspect]
     Indication: RHEUMATOID ARTHRITIS
     Route: 042
     Dates: start: 20130327, end: 20130327
  2. CLARITIN [Concomitant]
     Indication: PRURITUS
     Route: 065
  3. CLARITIN [Concomitant]
     Indication: RASH
  4. METHOTREXATE [Concomitant]
     Indication: RHEUMATOID ARTHRITIS
     Route: 058
     Dates: start: 20120308
  5. PREDNISONE [Concomitant]
     Indication: RHEUMATOID ARTHRITIS
     Route: 065
     Dates: start: 20120412
  6. FOLIC ACID [Concomitant]
     Route: 048
     Dates: start: 20110309
  7. PREGABALIN [Concomitant]
     Route: 048
     Dates: start: 20130307
  8. EFFEXOR XR [Concomitant]
     Route: 048
     Dates: start: 20121010
  9. DURAGESIC [Concomitant]
     Route: 065
  10. ALPRAZOLAM [Concomitant]
     Route: 048
  11. VITAMIN D3 [Concomitant]
     Route: 048

REACTIONS (6)
  - Rash [Recovering/Resolving]
  - Pruritus [Recovered/Resolved]
  - Syncope [Recovered/Resolved]
  - Fall [Unknown]
  - Urticaria [Unknown]
  - Loss of consciousness [Unknown]
